FAERS Safety Report 6416301-1 (Version None)
Quarter: 2009Q4

REPORT INFORMATION
  Report Type: 
  Country: None (occurrence: None)
  Receive Date: 20091026
  Receipt Date: 20091010
  Transmission Date: 20100525
  Serious: Yes (Other)
  Sender: FDA-Public Use
  Company Number: ALL1-2009-03168

PATIENT
  Age: 13 Year
  Sex: Male
  Weight: 52.6 kg

DRUGS (2)
  1. VYVANSE [Suspect]
     Indication: ATTENTION DEFICIT/HYPERACTIVITY DISORDER
     Dosage: 40 MG, 1X/DAY:QD, ORAL; 30 MG, 1X/DAY:QD, ORAL
     Route: 048
     Dates: start: 20080101, end: 20080101
  2. VYVANSE [Suspect]
     Indication: ATTENTION DEFICIT/HYPERACTIVITY DISORDER
     Dosage: 40 MG, 1X/DAY:QD, ORAL; 30 MG, 1X/DAY:QD, ORAL
     Route: 048
     Dates: start: 20080101, end: 20090601

REACTIONS (6)
  - AGGRESSION [None]
  - ANGER [None]
  - FEELING ABNORMAL [None]
  - HAND FRACTURE [None]
  - IRRITABILITY [None]
  - SLEEP DISORDER [None]
